FAERS Safety Report 9521771 (Version 2)
Quarter: 2013Q3

REPORT INFORMATION
  Report Type: Spontaneous
  Country: SE (occurrence: SE)
  Receive Date: 20130913
  Receipt Date: 20130923
  Transmission Date: 20140515
  Serious: Yes (Hospitalization, Other)
  Sender: FDA-Public Use
  Company Number: PHHY2013SE100949

PATIENT
  Age: 75 Year
  Sex: Female

DRUGS (1)
  1. ACLASTA [Suspect]
     Dosage: 5 MG
     Route: 042
     Dates: start: 201304

REACTIONS (15)
  - Adverse drug reaction [Unknown]
  - Back pain [Unknown]
  - Dyspnoea [Unknown]
  - Headache [Unknown]
  - Cardiac tamponade [Unknown]
  - Chest pain [Unknown]
  - Pericardial effusion [Unknown]
  - Pleural effusion [Unknown]
  - Hypoaesthesia [Recovered/Resolved]
  - Influenza like illness [Recovered/Resolved]
  - Dizziness [Recovered/Resolved]
  - Local swelling [Unknown]
  - Neck pain [Unknown]
  - Joint swelling [Recovering/Resolving]
  - Dehydration [Unknown]
